FAERS Safety Report 4969782-4 (Version None)
Quarter: 2006Q2

REPORT INFORMATION
  Report Type: 
  Country: None (occurrence: None)
  Receive Date: 20060411
  Receipt Date: 20060227
  Transmission Date: 20061013
  Serious: Yes (Hospitalization)
  Sender: FDA-Public Use
  Company Number: US-MERCK-0602USA05973

PATIENT
  Age: 66 Year
  Sex: Female
  Weight: 100 kg

DRUGS (15)
  1. VIOXX [Suspect]
     Indication: ARTHRITIS
     Route: 048
     Dates: start: 20010806, end: 20041030
  2. HYDROCHLOROTHIAZIDE AND TRIAMTERENE [Concomitant]
     Route: 065
  3. NORVASC [Concomitant]
     Route: 048
  4. SINGULAIR [Concomitant]
     Route: 048
  5. FLOVENT [Concomitant]
     Route: 055
  6. ASPIRIN [Concomitant]
     Route: 065
  7. CALCIUM (UNSPECIFIED) [Concomitant]
     Route: 065
  8. RANITIDINE [Concomitant]
     Route: 048
  9. MECLIZINE [Concomitant]
     Route: 048
  10. ALBUTEROL [Concomitant]
     Route: 055
  11. LASIX [Concomitant]
     Route: 065
  12. ADVAIR DISKUS 100/50 [Concomitant]
     Route: 065
  13. PULMICORT [Concomitant]
     Route: 065
  14. OMEPRAZOLE [Concomitant]
     Route: 065
  15. MAGNESIUM (UNSPECIFIED) [Concomitant]
     Route: 065

REACTIONS (9)
  - ACUTE CORONARY SYNDROME [None]
  - BLOOD URINE PRESENT [None]
  - CHEST PAIN [None]
  - COLITIS [None]
  - FACIAL PAIN [None]
  - HAEMATOCHEZIA [None]
  - HYPOVOLAEMIC SHOCK [None]
  - MYOCARDIAL INFARCTION [None]
  - SCIATICA [None]
